FAERS Safety Report 15898461 (Version 1)
Quarter: 2019Q1

REPORT INFORMATION
  Report Type: Spontaneous
  Country: DE (occurrence: DE)
  Receive Date: 20190201
  Receipt Date: 20190201
  Transmission Date: 20190417
  Serious: Yes (Hospitalization)
  Sender: FDA-Public Use
  Company Number: DE-ACCORD-104638

PATIENT
  Age: 79 Year
  Sex: Male
  Weight: 84 kg

DRUGS (8)
  1. XTANDI [Concomitant]
     Active Substance: ENZALUTAMIDE
     Dosage: 160 MG, 1-0-0-0, CAPSULES
     Route: 048
  2. METAMIZOLE SODIUM [Concomitant]
     Active Substance: METAMIZOLE SODIUM
     Dosage: 1000 MG, 1-1-1-1, TABLETS
     Route: 048
  3. L-THYROXIN [Concomitant]
     Active Substance: LEVOTHYROXINE SODIUM
     Dosage: 75 MICROGRAM, 1-0-0-0, TABLETS
     Route: 048
  4. CLEXANE [Concomitant]
     Active Substance: ENOXAPARIN SODIUM
     Dosage: 8000 IE, 1-0-1-0, PRE-FILLED SYRINGES
     Route: 058
  5. CARBOPLATIN. [Suspect]
     Active Substance: CARBOPLATIN
     Indication: PRODUCT USED FOR UNKNOWN INDICATION
     Dosage: 5 MG, SCHEME, SOLUTION FOR INJECTION / INFUSION
     Route: 042
  6. ONDANSETRON [Concomitant]
     Active Substance: ONDANSETRON
     Dosage: 8 MG, NEED, TABLETS
     Route: 048
  7. FIRMAGON [Concomitant]
     Active Substance: DEGARELIX ACETATE
     Dosage: NK MG, NK, SOLUTION FOR INJECTION / INFUSION
     Route: 042
  8. ETOPOSIDE. [Suspect]
     Active Substance: ETOPOSIDE
     Indication: PRODUCT USED FOR UNKNOWN INDICATION
     Dosage: 120 / MILLIGRAM PER METER SQ., SCHEME, SOLUTION FOR INJECTION / INFUSION
     Route: 042

REACTIONS (5)
  - Fatigue [Unknown]
  - General physical health deterioration [Unknown]
  - Chest pain [Unknown]
  - Pyrexia [Unknown]
  - Dysuria [Unknown]
